FAERS Safety Report 11546085 (Version 1)
Quarter: 2015Q3

REPORT INFORMATION
  Report Type: Report from Study
  Country: KR (occurrence: KR)
  Receive Date: 20150924
  Receipt Date: 20150924
  Transmission Date: 20151125
  Serious: Yes (Hospitalization)
  Sender: FDA-Public Use
  Company Number: KR-PFIZER INC-2015315847

PATIENT
  Age: 3 Year
  Sex: Male

DRUGS (1)
  1. BANAN [Suspect]
     Active Substance: CEFPODOXIME PROXETIL
     Dosage: UNK
     Route: 048
     Dates: start: 20120608, end: 20120615

REACTIONS (2)
  - Cough [Recovered/Resolved]
  - Pyrexia [Recovered/Resolved]

NARRATIVE: CASE EVENT DATE: 20120615
